FAERS Safety Report 16373169 (Version 2)
Quarter: 2019Q2

REPORT INFORMATION
  Report Type: Spontaneous
  Country: US (occurrence: US)
  Receive Date: 20190530
  Receipt Date: 20190611
  Transmission Date: 20190711
  Serious: Yes (Other)
  Sender: FDA-Public Use
  Company Number: PHEH2019US022439

PATIENT
  Age: 58 Year
  Sex: Male

DRUGS (1)
  1. AMITRIPTYLINE HYDROCHLORIDE SANDOZ [Suspect]
     Active Substance: AMITRIPTYLINE HYDROCHLORIDE
     Indication: PAIN
     Dosage: 10 MG, QD (INCREASE TO 2-3 TABLETS AT BEDTIME)
     Route: 065
     Dates: start: 201806, end: 201806

REACTIONS (10)
  - Crying [Recovered/Resolved]
  - Drug intolerance [Unknown]
  - Emotional disorder [Recovered/Resolved]
  - Feeling abnormal [Unknown]
  - Thinking abnormal [Recovered/Resolved]
  - Memory impairment [Unknown]
  - Tearfulness [Unknown]
  - Depression [Unknown]
  - Loss of libido [Recovered/Resolved]
  - Acalculia [Recovered/Resolved]

NARRATIVE: CASE EVENT DATE: 201806
